FAERS Safety Report 8602479-8 (Version None)
Quarter: 2012Q3

REPORT INFORMATION
  Report Type: 
  Country: None (occurrence: None)
  Receive Date: 20120817
  Receipt Date: 20120723
  Transmission Date: 20120928
  Serious: Yes (Hospitalization)
  Sender: FDA-Public Use
  Company Number: US-ROCHE-1080742

PATIENT
  Sex: Male

DRUGS (3)
  1. PANTOPRAZOLE SODIUM [Concomitant]
     Dates: start: 20081208
  2. CELLCEPT [Suspect]
     Indication: RENAL TRANSPLANT
     Dates: start: 20070531
  3. CYCLOSPORINE [Suspect]
     Indication: RENAL TRANSPLANT
     Dates: start: 20070601

REACTIONS (2)
  - INFECTION [None]
  - GRAFT DYSFUNCTION [None]
